FAERS Safety Report 6919053-1 (Version None)
Quarter: 2010Q3

REPORT INFORMATION
  Report Type: 
  Country: None (occurrence: None)
  Receive Date: 20100811
  Receipt Date: 20100728
  Transmission Date: 20110219
  Serious: Yes (Hospitalization, Other)
  Sender: FDA-Public Use
  Company Number: PHHY2010FR50258

PATIENT
  Sex: Female

DRUGS (12)
  1. TAREG [Suspect]
     Indication: HYPERTENSION
     Dosage: 80 MG DAILY
     Dates: end: 20100609
  2. CIFLOX [Suspect]
     Dosage: 500 MG, BID
     Dates: start: 20100602, end: 20100611
  3. MEMANTINE HCL [Suspect]
     Indication: DEMENTIA
     Dosage: 10 MG DAILY
     Dates: start: 20100605
  4. MEMANTINE HCL [Suspect]
     Dosage: 20 MG
     Dates: start: 20100616, end: 20100628
  5. ESOMEPRAZOLE MAGNESIUM [Suspect]
     Dosage: 20 MG DAILY
     Dates: end: 20100628
  6. ACETAMINOPHEN [Suspect]
     Dosage: 3 TO 4 TIMES DAILY
     Dates: end: 20100628
  7. FERROSTRANE [Suspect]
     Indication: ANAEMIA
     Dosage: 2 DF, QD
     Dates: end: 20100628
  8. CACIT D3 [Suspect]
     Dosage: UNK
  9. TRIVASTAL [Suspect]
     Dosage: 50 MG, BID
     Dates: end: 20100628
  10. STABLON [Suspect]
     Dosage: 12.5 MG, QD
     Dates: end: 20100628
  11. MODAFINIL [Suspect]
     Indication: HYPERSOMNIA
     Dosage: 100 MG, BID
     Dates: start: 20100101
  12. ASPEGIC 1000 [Concomitant]
     Dosage: 100 MG, QD

REACTIONS (12)
  - BLOOD ALKALINE PHOSPHATASE INCREASED [None]
  - BRONCHOPNEUMOPATHY [None]
  - CELL DEATH [None]
  - CHOLESTASIS [None]
  - CYTOLYTIC HEPATITIS [None]
  - GAIT DISTURBANCE [None]
  - GAMMA-GLUTAMYLTRANSFERASE INCREASED [None]
  - GENERAL PHYSICAL HEALTH DETERIORATION [None]
  - HEPATIC ENZYME INCREASED [None]
  - MUSCULOSKELETAL STIFFNESS [None]
  - PYREXIA [None]
  - URINARY TRACT INFECTION [None]
